FAERS Safety Report 11890136 (Version 1)
Quarter: 2016Q1

REPORT INFORMATION
  Report Type: Spontaneous
  Country: TR (occurrence: TR)
  Receive Date: 20160105
  Receipt Date: 20160105
  Transmission Date: 20160526
  Serious: Yes (Death)
  Sender: FDA-Public Use
  Company Number: PHHY2015TR170993

PATIENT
  Sex: Male
  Weight: 72.7 kg

DRUGS (1)
  1. DIGOXIN. [Suspect]
     Active Substance: DIGOXIN
     Indication: CARDIAC FAILURE
     Dosage: 0.25 MG, QD
     Route: 048
     Dates: start: 20151125

REACTIONS (4)
  - Infection [Fatal]
  - Acute kidney injury [Fatal]
  - Mesothelioma malignant [Fatal]
  - Cardiac failure [Fatal]
